FAERS Safety Report 4582299-4 (Version None)
Quarter: 2005Q1

REPORT INFORMATION
  Report Type: 
  Country: None (occurrence: None)
  Receive Date: 20050211
  Receipt Date: 20050211
  Transmission Date: 20050727
  Serious: No
  Sender: FDA-Public Use
  Company Number: None

PATIENT
  Age: 53 Year
  Sex: Male
  Weight: 73.0291 kg

DRUGS (1)
  1. SANDOSTATIN [Suspect]
     Indication: RECTAL CANCER
     Dosage: 1 TEST DOSE SQ
     Route: 058
     Dates: start: 20050209

REACTIONS (3)
  - ABDOMINAL PAIN [None]
  - DIARRHOEA [None]
  - FREQUENT BOWEL MOVEMENTS [None]
